FAERS Safety Report 6278395-6 (Version None)
Quarter: 2009Q3

REPORT INFORMATION
  Report Type: 
  Country: None (occurrence: None)
  Receive Date: 20090722
  Receipt Date: 20090709
  Transmission Date: 20100115
  Serious: Yes (Hospitalization)
  Sender: FDA-Public Use
  Company Number: FR-GENENTECH-280621

PATIENT
  Sex: Female

DRUGS (4)
  1. BEVACIZUMAB [Suspect]
     Indication: OVARIAN EPITHELIAL CANCER
     Dosage: 420 MG, UNK
     Route: 042
     Dates: start: 20080822
  2. CARBOPLATIN [Suspect]
     Indication: OVARIAN EPITHELIAL CANCER
     Dosage: 535 MG, UNK
     Route: 042
     Dates: start: 20080703
  3. PACLITAXEL [Suspect]
     Indication: OVARIAN EPITHELIAL CANCER
     Dosage: 280 MG, UNK
     Route: 042
     Dates: start: 20080703
  4. COLPOTROPHINE [Concomitant]
     Indication: DRUG USE FOR UNKNOWN INDICATION
     Dosage: UNK
     Dates: start: 20080822

REACTIONS (2)
  - LUNG DISORDER [None]
  - PYREXIA [None]
